FAERS Safety Report 24573344 (Version 3)
Quarter: 2024Q4

REPORT INFORMATION
  Report Type: Spontaneous
  Country: CN (occurrence: CN)
  Receive Date: 20241101
  Receipt Date: 20241114
  Transmission Date: 20250115
  Serious: Yes (Hospitalization, Other)
  Sender: GLAXOSMITHKLINE
  Company Number: CN-GSK-CN2024APC133322

PATIENT

DRUGS (2)
  1. SERETIDE [Suspect]
     Active Substance: FLUTICASONE PROPIONATE\SALMETEROL XINAFOATE
     Indication: Asthma
     Dosage: UNK
  2. NUCALA [Suspect]
     Active Substance: MEPOLIZUMAB
     Indication: Eosinophilic granulomatosis with polyangiitis
     Dosage: 300 MG, Q4W
     Dates: start: 202401

REACTIONS (20)
  - Chest discomfort [Unknown]
  - Dyspnoea [Unknown]
  - Pyrexia [Unknown]
  - Diarrhoea [Unknown]
  - Eosinophilic granulomatosis with polyangiitis [Unknown]
  - Peripheral nerve injury [Unknown]
  - Mental disorder [Unknown]
  - Diet failure [Unknown]
  - Urine flow decreased [Unknown]
  - Urticaria [Unknown]
  - Weight decreased [Unknown]
  - Injection site erythema [Recovered/Resolved]
  - Injection site swelling [Recovered/Resolved]
  - Abdominal pain upper [Unknown]
  - Rash [Unknown]
  - Fatigue [Unknown]
  - Sinusitis [Unknown]
  - Hepatic function abnormal [Unknown]
  - Anaemia [Unknown]
  - Drug ineffective [Unknown]

NARRATIVE: CASE EVENT DATE: 20230601
